FAERS Safety Report 10142653 (Version 2)
Quarter: 2014Q2

REPORT INFORMATION
  Report Type: Spontaneous
  Country: US (occurrence: None)
  Receive Date: 20140425
  Receipt Date: 20140506
  Transmission Date: 20141212
  Serious: Yes (Hospitalization, Other)
  Sender: FDA-Public Use
  Company Number: AUR-APL-2014-04875

PATIENT
  Age: 25 Year
  Sex: Male

DRUGS (3)
  1. LAMIVUDINE (LAMIVUDINE) [Suspect]
     Indication: VIROLOGIC FAILURE
     Dates: start: 201009
  2. TENOFOVIR (TENOFOVIR) UNKNOWN [Suspect]
     Indication: VIROLOGIC FAILURE
     Dates: start: 201009
  3. LOPINAVIR (LOPINAVIR) [Suspect]
     Indication: VIROLOGIC FAILURE
     Dates: start: 201009

REACTIONS (2)
  - Molluscum contagiosum [None]
  - Immune reconstitution inflammatory syndrome [None]
